FAERS Safety Report 5797918-4 (Version None)
Quarter: 2008Q3

REPORT INFORMATION
  Report Type: 
  Country: None (occurrence: None)
  Receive Date: 20080702
  Receipt Date: 20080618
  Transmission Date: 20090109
  Serious: Yes (Death, Hospitalization, Other)
  Sender: FDA-Public Use
  Company Number: DE-ELI_LILLY_AND_COMPANY-DE200806005117

PATIENT
  Age: 50 Year
  Sex: Female

DRUGS (4)
  1. GEMZAR [Suspect]
     Indication: PANCREATIC CARCINOMA
     Dosage: 1000 MG/M2, UNKNOWN
     Route: 042
     Dates: start: 20080101
  2. METOCLOPRAMIDE [Concomitant]
  3. GRANISETRON HCL [Concomitant]
  4. BROMAZEPAM [Concomitant]
     Dosage: 1.5 MG, UNK

REACTIONS (5)
  - GENERAL PHYSICAL HEALTH DETERIORATION [None]
  - MULTI-ORGAN FAILURE [None]
  - PNEUMONIA [None]
  - PYREXIA [None]
  - SEPSIS [None]
